FAERS Safety Report 8924785 (Version 1)
Quarter: 2012Q4

REPORT INFORMATION
  Report Type: 
  Country: BR (occurrence: BR)
  Receive Date: 20121126
  Receipt Date: 20121126
  Transmission Date: 20130627
  Serious: Yes (Other)
  Sender: FDA-Public Use
  Company Number: BR-PFIZER INC-2012293864

PATIENT
  Age: 82 Year
  Sex: Female

DRUGS (1)
  1. LYRICA [Suspect]
     Indication: SPINAL PAIN
     Dosage: 75 mg, 2x/day
     Route: 048
     Dates: start: 20111121

REACTIONS (2)
  - Cardiac disorder [Unknown]
  - Drug ineffective [Not Recovered/Not Resolved]
